FAERS Safety Report 19008036 (Version 5)
Quarter: 2021Q2

REPORT INFORMATION
  Report Type: Report from Study
  Country: US (occurrence: US)
  Receive Date: 20210315
  Receipt Date: 20210428
  Transmission Date: 20210717
  Serious: Yes (Death, Hospitalization, Other)
  Sender: FDA-Public Use
  Company Number: US-INSMED, INC.-US-INS-20-02325

PATIENT
  Age: 77 Year
  Sex: Female

DRUGS (1)
  1. ARIKAYCE [Suspect]
     Active Substance: AMIKACIN
     Indication: MYCOBACTERIUM AVIUM COMPLEX INFECTION
     Dosage: 590 MILLIGRAM, QD
     Route: 055
     Dates: start: 20201216, end: 202101

REACTIONS (14)
  - Eating disorder [Unknown]
  - Pulmonary oedema [Unknown]
  - Renal failure [Unknown]
  - Product dose omission issue [Unknown]
  - Therapy interrupted [Unknown]
  - Unresponsive to stimuli [Unknown]
  - Somnolence [Unknown]
  - Accidental underdose [Unknown]
  - Death [Fatal]
  - Bedridden [Unknown]
  - Hospitalisation [Unknown]
  - Cardiac failure congestive [Unknown]
  - Fatigue [Unknown]
  - Product administered at inappropriate site [Unknown]

NARRATIVE: CASE EVENT DATE: 20201231
